FAERS Safety Report 11109643 (Version 1)
Quarter: 2015Q2

REPORT INFORMATION
  Report Type: Spontaneous
  Country: US (occurrence: None)
  Receive Date: 20150512
  Receipt Date: 20150512
  Transmission Date: 20150821
  Serious: No
  Sender: FDA-Public Use
  Company Number: None

PATIENT
  Age: 56 Year
  Sex: Male

DRUGS (1)
  1. COPAXONE [Suspect]
     Active Substance: GLATIRAMER ACETATE
     Indication: MULTIPLE SCLEROSIS
     Dates: start: 20120111, end: 20150506

REACTIONS (7)
  - Chest pain [None]
  - Tremor [None]
  - Blood pressure increased [None]
  - Chills [None]
  - Erythema [None]
  - Feeling hot [None]
  - Neck pain [None]

NARRATIVE: CASE EVENT DATE: 20150506
